FAERS Safety Report 9403299 (Version 1)
Quarter: 2013Q3

REPORT INFORMATION
  Report Type: Spontaneous
  Country: FR (occurrence: FR)
  Receive Date: 20130716
  Receipt Date: 20130716
  Transmission Date: 20140515
  Serious: Yes (Hospitalization, Other)
  Sender: FDA-Public Use
  Company Number: FR-TEVA-418928ISR

PATIENT
  Age: 72 Year
  Sex: Male

DRUGS (2)
  1. FUROSEMIDE TEVA 40MG, SCORED TABLET [Suspect]
     Dosage: 120 MILLIGRAM DAILY;
     Route: 048
     Dates: start: 20130503, end: 20130605
  2. AMLODIPINE BIOGARAN 10MG [Concomitant]
     Dosage: 10 MILLIGRAM DAILY;

REACTIONS (4)
  - Acute pulmonary oedema [Recovered/Resolved]
  - Hyperkalaemia [Unknown]
  - Dyspnoea [Unknown]
  - Renal failure chronic [Unknown]
